FAERS Safety Report 14841111 (Version 3)
Quarter: 2018Q2

REPORT INFORMATION
  Report Type: Spontaneous
  Country: US (occurrence: US)
  Receive Date: 20180503
  Receipt Date: 20180525
  Transmission Date: 20180711
  Serious: No
  Sender: FDA-Public Use
  Company Number: US-SUNOVION-2018SUN001783

PATIENT
  Sex: Male

DRUGS (1)
  1. LATUDA [Suspect]
     Active Substance: LURASIDONE HYDROCHLORIDE
     Indication: DEPRESSION
     Dosage: 80 MG, UNK
     Route: 048
     Dates: start: 20180416, end: 201804

REACTIONS (3)
  - Off label use [Unknown]
  - Muscle tightness [Recovered/Resolved]
  - Movement disorder [Recovered/Resolved]
